FAERS Safety Report 23623861 (Version 1)
Quarter: 2024Q1

REPORT INFORMATION
  Report Type: Spontaneous
  Country: US (occurrence: US)
  Receive Date: 20240312
  Receipt Date: 20240312
  Transmission Date: 20240410
  Serious: No
  Sender: FDA-Public Use
  Company Number: US-PFIZER INC-PV202400033180

PATIENT
  Sex: Female

DRUGS (1)
  1. PAXLOVID [Suspect]
     Active Substance: NIRMATRELVIR\RITONAVIR
     Indication: COVID-19 treatment

REACTIONS (8)
  - Vomiting [Unknown]
  - Illness [Unknown]
  - Oropharyngeal pain [Unknown]
  - Pain [Unknown]
  - Eye pain [Unknown]
  - Headache [Unknown]
  - Oropharyngeal pain [Unknown]
  - Arthralgia [Unknown]
